FAERS Safety Report 8084144-1 (Version None)
Quarter: 2012Q1

REPORT INFORMATION
  Report Type: 
  Country: None (occurrence: None)
  Receive Date: 20120128
  Receipt Date: 20110211
  Transmission Date: 20120608
  Serious: No
  Sender: FDA-Public Use
  Company Number: US-ABBOTT-11P-163-0704733-00

PATIENT
  Age: 57 Year
  Sex: Female

DRUGS (4)
  1. INHALER [Concomitant]
     Indication: INHALATION THERAPY
     Dosage: PRN
  2. LISINOPRIL [Concomitant]
     Indication: HYPERTENSION
     Dosage: DAILY
  3. PROZAC [Concomitant]
     Indication: MENOPAUSE
     Dosage: 20MG DAILY
  4. HUMIRA [Suspect]
     Indication: PSORIASIS
     Dates: start: 20110201

REACTIONS (5)
  - INJECTION SITE REACTION [None]
  - INJECTION SITE WARMTH [None]
  - INJECTION SITE PAIN [None]
  - INJECTION SITE RASH [None]
  - INJECTION SITE PRURITUS [None]
